FAERS Safety Report 6262701-2 (Version None)
Quarter: 2009Q3

REPORT INFORMATION
  Report Type: 
  Country: None (occurrence: None)
  Receive Date: 20090708
  Receipt Date: 20090702
  Transmission Date: 20100115
  Serious: Yes (Death, Hospitalization)
  Sender: FDA-Public Use
  Company Number: SPV1-2009-00652

PATIENT
  Age: 60 Year
  Sex: Male
  Weight: 82.5 kg

DRUGS (1)
  1. FOSRENOL [Suspect]
     Indication: HYPERPHOSPHATAEMIA
     Dosage: 1000 MG, WITH EACH MEAL, ORAL
     Route: 048

REACTIONS (4)
  - CARDIO-RESPIRATORY ARREST [None]
  - CIRCULATORY COLLAPSE [None]
  - MYOCARDIAL INFARCTION [None]
  - SUDDEN DEATH [None]
